FAERS Safety Report 20779505 (Version 1)
Quarter: 2022Q2

REPORT INFORMATION
  Report Type: Report from Study
  Country: IT (occurrence: IT)
  Receive Date: 20220503
  Receipt Date: 20220503
  Transmission Date: 20220720
  Serious: Yes (Death, Hospitalization, Other)
  Sender: FDA-Public Use
  Company Number: IT-002147023-NVSC2021IT210542

PATIENT

DRUGS (16)
  1. RUXOLITINIB [Suspect]
     Active Substance: RUXOLITINIB
     Indication: Myelofibrosis
     Dosage: 15 UNK (DAILY DOSE)
     Route: 048
     Dates: start: 20201218, end: 20210310
  2. RUXOLITINIB [Suspect]
     Active Substance: RUXOLITINIB
     Dosage: 8 UNK (DAILY DOSE)
     Route: 065
     Dates: start: 20210311, end: 20210323
  3. RUXOLITINIB [Suspect]
     Active Substance: RUXOLITINIB
     Dosage: 15 UNK (DAILY DOSE)
     Route: 065
     Dates: start: 20210324, end: 20210429
  4. RUXOLITINIB [Suspect]
     Active Substance: RUXOLITINIB
     Dosage: 19 UNK (DAILY DOSE)
     Route: 065
     Dates: start: 20210430, end: 20210511
  5. RUXOLITINIB [Suspect]
     Active Substance: RUXOLITINIB
     Dosage: 23 UNK (DAILY DOSE)
     Route: 065
     Dates: start: 20210512, end: 20210527
  6. RUXOLITINIB [Suspect]
     Active Substance: RUXOLITINIB
     Dosage: 15 UNK (DAILY DOSE)
     Route: 065
     Dates: start: 20210528, end: 20210613
  7. RUXOLITINIB [Suspect]
     Active Substance: RUXOLITINIB
     Dosage: 8 UNK (DAILY DOSE)
     Route: 065
     Dates: start: 20210614, end: 20210907
  8. CARDIOASPIRINA [Concomitant]
     Active Substance: ASPIRIN
     Indication: Thrombosis prophylaxis
     Dosage: 100 MG, QOD
     Route: 065
     Dates: start: 20101108
  9. BISOPROLOL [Concomitant]
     Active Substance: BISOPROLOL
     Indication: Acute myocardial infarction
     Dosage: 1 DF, QD
     Route: 065
     Dates: start: 20101108
  10. RAMIPRIL [Concomitant]
     Active Substance: RAMIPRIL
     Indication: Acute myocardial infarction
     Dosage: 1 DF, QD
     Route: 065
     Dates: start: 20101108
  11. ATORVASTATIN [Concomitant]
     Active Substance: ATORVASTATIN
     Indication: Hyperlipidaemia
     Dosage: 1 DF, QD
     Route: 065
     Dates: start: 20101108
  12. RANITIDINA [RANITIDINE HYDROCHLORIDE] [Concomitant]
     Indication: Gastritis prophylaxis
     Dosage: 1 DF, QD
     Route: 065
     Dates: start: 20101108
  13. OMEGA-3-ACID ETHYL ESTERS [Concomitant]
     Active Substance: OMEGA-3-ACID ETHYL ESTERS
     Indication: Hyperlipidaemia
     Dosage: 1 DF, QD
     Route: 065
     Dates: start: 20210120
  14. SILODOSIN [Concomitant]
     Active Substance: SILODOSIN
     Indication: Benign prostatic hyperplasia
     Dosage: 1 DF, QD
     Route: 065
     Dates: start: 20210120
  15. ALLOPURINOL [Concomitant]
     Active Substance: ALLOPURINOL
     Indication: Prophylaxis
     Dosage: 1 DF, QD
     Route: 065
     Dates: start: 20210120
  16. LASIX [Concomitant]
     Active Substance: FUROSEMIDE
     Indication: Prophylaxis
     Dosage: 25 MG, QD
     Route: 065
     Dates: start: 20210120

REACTIONS (13)
  - Anaemia [Unknown]
  - C-reactive protein increased [Unknown]
  - Pneumonia [Unknown]
  - Fatigue [Unknown]
  - Serum ferritin increased [Unknown]
  - Hyperglycaemia [Unknown]
  - Leukopenia [Unknown]
  - Neutropenia [Unknown]
  - Thrombocytopenia [Unknown]
  - Septic shock [Fatal]
  - Blood urea increased [Unknown]
  - White blood cell count decreased [Unknown]
  - General physical health deterioration [Unknown]

NARRATIVE: CASE EVENT DATE: 20210119
